FAERS Safety Report 7748228-7 (Version None)
Quarter: 2011Q3

REPORT INFORMATION
  Report Type: 
  Country: None (occurrence: None)
  Receive Date: 20110913
  Receipt Date: 20110622
  Transmission Date: 20111222
  Serious: No
  Sender: FDA-Public Use
  Company Number: US-ELI_LILLY_AND_COMPANY-US201106007143

PATIENT
  Age: 55 Year
  Sex: Female

DRUGS (4)
  1. REMERON                                 /USA/ [Concomitant]
  2. AMBIEN [Concomitant]
  3. CYMBALTA [Suspect]
     Indication: DIABETIC NEUROPATHY
     Dosage: UNK, UNKNOWN
     Dates: start: 20100901, end: 20110621
  4. ATIVAN [Concomitant]

REACTIONS (4)
  - WEIGHT INCREASED [None]
  - GLYCOSYLATED HAEMOGLOBIN INCREASED [None]
  - SEXUAL DYSFUNCTION [None]
  - HEPATIC ENZYME INCREASED [None]
